FAERS Safety Report 17180239 (Version 1)
Quarter: 2019Q4

REPORT INFORMATION
  Report Type: Spontaneous
  Country: DZ (occurrence: DZ)
  Receive Date: 20191219
  Receipt Date: 20191219
  Transmission Date: 20200122
  Serious: Yes (Other)
  Sender: FDA-Public Use
  Company Number: DZ-CELLTRION INC.-2019DZ027388

PATIENT

DRUGS (1)
  1. REMSIMA [Suspect]
     Active Substance: INFLIXIMAB
     Indication: PRODUCT USED FOR UNKNOWN INDICATION
     Dosage: 2 INFUSIONS
     Route: 065

REACTIONS (2)
  - Respiratory disorder [Unknown]
  - Loss of consciousness [Unknown]
